FAERS Safety Report 4481224-4 (Version None)
Quarter: 2004Q4

REPORT INFORMATION
  Report Type: 
  Country: None (occurrence: None)
  Receive Date: 20040923
  Receipt Date: 20040615
  Transmission Date: 20050328
  Serious: No
  Sender: FDA-Public Use
  Company Number: USA040157368

PATIENT
  Age: 73 Year
  Sex: Female
  Weight: 64 kg

DRUGS (6)
  1. FORTEO [Suspect]
     Indication: OSTEOPOROSIS
     Dosage: 20 UG DAY
     Dates: start: 20040112
  2. COUMADIN [Concomitant]
  3. NORVASC [Concomitant]
  4. SYNTHROID [Concomitant]
  5. PREDNISONE [Concomitant]
  6. CALCIUM WITH VITAMIN D [Concomitant]

REACTIONS (4)
  - INJECTION SITE HAEMORRHAGE [None]
  - MUSCLE SPASMS [None]
  - PAIN IN EXTREMITY [None]
  - VASCULAR INJURY [None]
